FAERS Safety Report 4426407-4 (Version None)
Quarter: 2004Q3

REPORT INFORMATION
  Report Type: 
  Country: None (occurrence: None)
  Receive Date: 20040811
  Receipt Date: 20040802
  Transmission Date: 20050211
  Serious: Yes (Life-Threatening, Hospitalization)
  Sender: FDA-Public Use
  Company Number: 2004AC00195

PATIENT
  Age: 57 Year
  Sex: Male

DRUGS (1)
  1. LISINOPRIL [Suspect]
     Indication: HYPERTENSION
     Dosage: 10 MG DAILY

REACTIONS (4)
  - ANGIONEUROTIC OEDEMA [None]
  - DROOLING [None]
  - RESPIRATORY DISTRESS [None]
  - SPEECH DISORDER [None]
